FAERS Safety Report 8408836-7 (Version None)
Quarter: 2012Q2

REPORT INFORMATION
  Report Type: 
  Country: None (occurrence: None)
  Receive Date: 20120604
  Receipt Date: 20120221
  Transmission Date: 20120825
  Serious: No
  Sender: FDA-Public Use
  Company Number: US-NOVEN-12US004140

PATIENT
  Sex: Female
  Weight: 60.317 kg

DRUGS (2)
  1. DOXYCYCLINE [Concomitant]
     Indication: ACNE
     Route: 048
  2. DAYTRANA [Suspect]
     Indication: ATTENTION DEFICIT/HYPERACTIVITY DISORDER
     Dosage: 30 MG, UNK
     Route: 062
     Dates: start: 20120201

REACTIONS (4)
  - PRODUCT QUALITY ISSUE [None]
  - INCORRECT STORAGE OF DRUG [None]
  - WRONG TECHNIQUE IN DRUG USAGE PROCESS [None]
  - NO ADVERSE EVENT [None]
